FAERS Safety Report 25481335 (Version 1)
Quarter: 2025Q2

REPORT INFORMATION
  Report Type: Spontaneous
  Country: US (occurrence: US)
  Receive Date: 20250626
  Receipt Date: 20250626
  Transmission Date: 20250716
  Serious: Yes (Other)
  Sender: AMGEN
  Company Number: US-AMGEN-USASP2025121204

PATIENT
  Sex: Female

DRUGS (1)
  1. REPATHA [Suspect]
     Active Substance: EVOLOCUMAB
     Indication: Product used for unknown indication
     Dosage: UNK, Q2WK, (140 MILLIGRAM)  (FOR ALMOST A YEAR)
     Route: 065

REACTIONS (4)
  - Hypertension [Unknown]
  - Dehydration [Unknown]
  - Pain [Unknown]
  - Headache [Unknown]
